FAERS Safety Report 8482283-4 (Version None)
Quarter: 2012Q3

REPORT INFORMATION
  Report Type: 
  Country: None (occurrence: None)
  Receive Date: 20120702
  Receipt Date: 20120622
  Transmission Date: 20120928
  Serious: Yes (Other)
  Sender: FDA-Public Use
  Company Number: CA-JNJFOC-20120302743

PATIENT
  Sex: Male
  Weight: 68 kg

DRUGS (5)
  1. ADDERALL XR 10 [Concomitant]
     Indication: ATTENTION DEFICIT/HYPERACTIVITY DISORDER
     Dosage: 2 TABLETS IN THE MORNING
     Route: 048
  2. PALIPERIDONE PALMITATE [Suspect]
     Route: 030
  3. PALIPERIDONE PALMITATE [Suspect]
     Route: 030
     Dates: start: 20120113
  4. MELATONIN [Concomitant]
     Indication: SLEEP DISORDER THERAPY
     Dosage: BED TIME
     Route: 065
  5. PALIPERIDONE PALMITATE [Suspect]
     Indication: PRODUCT USED FOR UNKNOWN INDICATION
     Route: 030

REACTIONS (5)
  - OROPHARYNGEAL PAIN [None]
  - INFLUENZA LIKE ILLNESS [None]
  - COUGH [None]
  - DYSPHONIA [None]
  - HAEMATEMESIS [None]
